FAERS Safety Report 5331542-2 (Version None)
Quarter: 2007Q2

REPORT INFORMATION
  Report Type: 
  Country: None (occurrence: None)
  Receive Date: 20070522
  Receipt Date: 20070509
  Transmission Date: 20071010
  Serious: Yes (Other)
  Sender: FDA-Public Use
  Company Number: CA-ELI_LILLY_AND_COMPANY-CA200705003188

PATIENT
  Age: 13 Year
  Sex: Female
  Weight: 41.1 kg

DRUGS (2)
  1. STRATTERA [Suspect]
     Indication: ATTENTION DEFICIT/HYPERACTIVITY DISORDER
     Dosage: 50 MG, DAILY (1/D)
  2. CONCERTA [Concomitant]
     Dosage: 45 MG, UNK

REACTIONS (1)
  - RAYNAUD'S PHENOMENON [None]
